FAERS Safety Report 22806615 (Version 5)
Quarter: 2024Q1

REPORT INFORMATION
  Report Type: Spontaneous
  Country: US (occurrence: US)
  Receive Date: 20230810
  Receipt Date: 20240222
  Transmission Date: 20240409
  Serious: Yes (Hospitalization)
  Sender: FDA-Public Use
  Company Number: US-BIOGEN-2023BI01219330

PATIENT
  Sex: Female

DRUGS (3)
  1. TYSABRI [Suspect]
     Active Substance: NATALIZUMAB
     Indication: Multiple sclerosis
     Route: 050
     Dates: start: 20200211
  2. TYSABRI [Suspect]
     Active Substance: NATALIZUMAB
     Route: 050
     Dates: start: 20120723, end: 20170501
  3. TYSABRI [Suspect]
     Active Substance: NATALIZUMAB
     Route: 050
     Dates: start: 20200211

REACTIONS (9)
  - Sepsis [Unknown]
  - Cystitis pseudomonal [Unknown]
  - Ureteric dilatation [Unknown]
  - Nephrolithiasis [Unknown]
  - Sinusitis [Unknown]
  - Bladder disorder [Unknown]
  - Renal disorder [Unknown]
  - Kidney infection [Unknown]
  - Urinary tract infection [Unknown]
